FAERS Safety Report 9844879 (Version 1)
Quarter: 2014Q1

REPORT INFORMATION
  Report Type: Spontaneous
  Country: US (occurrence: None)
  Receive Date: 20140122
  Receipt Date: 20140122
  Transmission Date: 20141002
  Serious: Yes (Other)
  Sender: FDA-Public Use
  Company Number: VAL_02903_2014

PATIENT
  Age: 23 Year
  Sex: Male

DRUGS (2)
  1. CARBAMAZEPINE [Suspect]
     Indication: PRODUCT USED FOR UNKNOWN INDICATION
  2. PAROXETINE [Suspect]
     Indication: PRODUCT USED FOR UNKNOWN INDICATION

REACTIONS (10)
  - Affect lability [None]
  - Treatment noncompliance [None]
  - Crime [None]
  - Imprisonment [None]
  - Nausea [None]
  - Dizziness [None]
  - Anxiety [None]
  - Fatigue [None]
  - Drug withdrawal syndrome [None]
  - Hypersexuality [None]
